FAERS Safety Report 24381390 (Version 3)
Quarter: 2025Q1

REPORT INFORMATION
  Report Type: Spontaneous
  Country: PT (occurrence: PT)
  Receive Date: 20241001
  Receipt Date: 20250307
  Transmission Date: 20250408
  Serious: Yes (Other)
  Sender: NOVO NORDISK
  Company Number: PT-NOVOPROD-1288232

PATIENT
  Age: 1 Month
  Sex: Female
  Weight: 3.06 kg

DRUGS (3)
  1. ESTRADIOL HEMIHYDRATE [Suspect]
     Active Substance: ESTRADIOL HEMIHYDRATE
     Indication: In vitro fertilisation
     Dosage: 2 MG, TID
     Route: 064
     Dates: start: 20231018, end: 20231130
  2. TROMALYT [Concomitant]
     Active Substance: ASPIRIN
     Indication: Product used for unknown indication
     Dates: start: 20231127
  3. INFLIXIMAB [Concomitant]
     Active Substance: INFLIXIMAB
     Indication: Crohn^s disease

REACTIONS (11)
  - Tethered oral tissue [Recovered/Resolved]
  - Choking [Not Recovered/Not Resolved]
  - Haematochezia [Recovered/Resolved]
  - Muscle rigidity [Recovered/Resolved]
  - Jaw disorder [Not Recovered/Not Resolved]
  - Tongue disorder [Not Recovered/Not Resolved]
  - Gastrooesophageal reflux disease [Not Recovered/Not Resolved]
  - Selective eating disorder [Not Recovered/Not Resolved]
  - Skin lesion [Recovered/Resolved]
  - Diarrhoea [Recovered/Resolved]
  - Foetal exposure during pregnancy [Recovered/Resolved]

NARRATIVE: CASE EVENT DATE: 20231018
